FAERS Safety Report 6183726-1 (Version None)
Quarter: 2009Q2

REPORT INFORMATION
  Report Type: 
  Country: None (occurrence: None)
  Receive Date: 20090508
  Receipt Date: 20090428
  Transmission Date: 20091009
  Serious: Yes (Other)
  Sender: FDA-Public Use
  Company Number: DE-BAYER-200910262GPV

PATIENT
  Age: 31 Year
  Sex: Female

DRUGS (1)
  1. DROSPIRENONE AND ETHINYL ESTRADIOL [Suspect]
     Indication: ORAL CONTRACEPTION
     Dosage: TOTAL DAILY DOSE: 1 DF
     Route: 048
     Dates: start: 20081215, end: 20090105

REACTIONS (5)
  - CYST [None]
  - DYSPAREUNIA [None]
  - MENORRHAGIA [None]
  - PELVIC PAIN [None]
  - WEIGHT DECREASED [None]
